FAERS Safety Report 9378684 (Version 1)
Quarter: 2013Q3

REPORT INFORMATION
  Report Type: Spontaneous
  Country: US (occurrence: US)
  Receive Date: 20130702
  Receipt Date: 20130702
  Transmission Date: 20140515
  Serious: Yes (Hospitalization, Disabling, Other)
  Sender: FDA-Public Use
  Company Number: US-ASTRAZENECA-2013SE48326

PATIENT
  Age: 57 Year
  Sex: Female
  Weight: 85.3 kg

DRUGS (5)
  1. SYMBICORT [Suspect]
     Indication: OROPHARYNGEAL PAIN
     Dosage: TWO INHALATIONS TWO TIMES A DAY
     Route: 055
     Dates: start: 20130531, end: 20130607
  2. SYMBICORT [Suspect]
     Indication: ASTHMA
     Dosage: TWO INHALATIONS TWO TIMES A DAY
     Route: 055
     Dates: start: 20130531, end: 20130607
  3. VENTOLIN [Concomitant]
     Indication: ASTHMA
  4. METFORMIN [Concomitant]
     Indication: BLOOD GLUCOSE INCREASED
  5. ADVAIR [Concomitant]

REACTIONS (6)
  - Dyspnoea [Recovering/Resolving]
  - Cerebrovascular accident [Unknown]
  - Craniocerebral injury [Unknown]
  - Weight increased [Unknown]
  - Psychomotor hyperactivity [Recovering/Resolving]
  - Blood glucose increased [Recovering/Resolving]
